FAERS Safety Report 5911409-9 (Version None)
Quarter: 2008Q4

REPORT INFORMATION
  Report Type: 
  Country: None (occurrence: None)
  Receive Date: 20081002
  Receipt Date: 20080919
  Transmission Date: 20090506
  Serious: Yes (Hospitalization)
  Sender: FDA-Public Use
  Company Number: 034481

PATIENT
  Age: 47 Year
  Sex: Male

DRUGS (1)
  1. SULFAMETHOXAZOLE AND TRIMETHOPRIM [Suspect]
     Indication: SINUSITIS

REACTIONS (7)
  - ACUTE FEBRILE NEUTROPHILIC DERMATOSIS [None]
  - DRUG INEFFECTIVE [None]
  - HYPOTENSION [None]
  - NAUSEA [None]
  - POLYARTHRITIS [None]
  - SCLERITIS [None]
  - SYNOVITIS [None]
